FAERS Safety Report 23224152 (Version 1)
Quarter: 2023Q4

REPORT INFORMATION
  Report Type: Spontaneous
  Country: FR (occurrence: FR)
  Receive Date: 20231124
  Receipt Date: 20231124
  Transmission Date: 20240109
  Serious: Yes (Other)
  Sender: FDA-Public Use
  Company Number: FR-002147023-NVSC2021FR206881

PATIENT
  Age: 53 Year
  Sex: Male
  Weight: 73 kg

DRUGS (5)
  1. NELARABINE [Suspect]
     Active Substance: NELARABINE
     Indication: Product used for unknown indication
     Dosage: 2800 MG, QD
     Route: 042
     Dates: start: 20200103
  2. BACTRIM [Concomitant]
     Active Substance: SULFAMETHOXAZOLE\TRIMETHOPRIM
     Indication: Product used for unknown indication
     Dosage: UNK
     Route: 065
  3. INNOHEP [Concomitant]
     Active Substance: TINZAPARIN SODIUM
     Indication: Product used for unknown indication
     Dosage: UNK
     Route: 065
  4. LEUCOVORIN CALCIUM [Concomitant]
     Active Substance: LEUCOVORIN CALCIUM
     Indication: Product used for unknown indication
     Dosage: UNK
     Route: 065
  5. VALACYCLOVIR HYDROCHLORIDE [Concomitant]
     Active Substance: VALACYCLOVIR HYDROCHLORIDE
     Indication: Product used for unknown indication
     Dosage: UNK
     Route: 065

REACTIONS (6)
  - Psoas abscess [Recovering/Resolving]
  - Arthritis [Recovering/Resolving]
  - Osteitis [Recovering/Resolving]
  - Staphylococcal infection [Recovering/Resolving]
  - Septic arthritis staphylococcal [Recovered/Resolved]
  - Pyrexia [Recovered/Resolved]

NARRATIVE: CASE EVENT DATE: 20200107
